FAERS Safety Report 14311154 (Version 3)
Quarter: 2018Q1

REPORT INFORMATION
  Report Type: Report from Study
  Country: AU (occurrence: AU)
  Receive Date: 20171221
  Receipt Date: 20180124
  Transmission Date: 20180509
  Serious: Yes (Other)
  Sender: FDA-Public Use
  Company Number: AU-BEH-2017086022

PATIENT
  Age: 42 Year
  Sex: Male
  Weight: 76 kg

DRUGS (4)
  1. KEPPRA [Concomitant]
     Active Substance: LEVETIRACETAM
     Route: 065
  2. RANITIDINE. [Concomitant]
     Active Substance: RANITIDINE
     Route: 065
  3. RIASTAP [Suspect]
     Active Substance: FIBRINOGEN HUMAN
     Indication: HYPOFIBRINOGENAEMIA
     Dosage: 3 G, SINGLE
     Route: 042
     Dates: start: 20170810, end: 20170810
  4. RIASTAP [Suspect]
     Active Substance: FIBRINOGEN HUMAN
     Indication: TRAUMATIC HAEMORRHAGE

REACTIONS (11)
  - Surgery [Recovered/Resolved]
  - Soft tissue injury [Unknown]
  - Soft tissue injury [Unknown]
  - Tracheostomy tube removal [Unknown]
  - Soft tissue infection [Recovered/Resolved]
  - Neutropenia [Recovered/Resolved]
  - Tracheostomy tube removal [Unknown]
  - Thrombophlebitis superficial [Recovered/Resolved]
  - Tracheostomy tube removal [Unknown]
  - Thrombocytopenia [Recovered/Resolved]
  - Soft tissue injury [Unknown]

NARRATIVE: CASE EVENT DATE: 20170821
